FAERS Safety Report 18028427 (Version 2)
Quarter: 2020Q3

REPORT INFORMATION
  Report Type: Spontaneous
  Country: US (occurrence: US)
  Receive Date: 20200716
  Receipt Date: 20200915
  Transmission Date: 20201103
  Serious: No
  Sender: FDA-Public Use
  Company Number: US-TAKEDA-2020TUS030597

PATIENT
  Age: 83 Year
  Sex: Male

DRUGS (1)
  1. BRIGATINIB [Suspect]
     Active Substance: BRIGATINIB
     Indication: BRAIN NEOPLASM MALIGNANT
     Dosage: 180 MILLIGRAM, QD
     Route: 065
     Dates: start: 20190401, end: 20200707

REACTIONS (3)
  - Diarrhoea [Unknown]
  - Drug intolerance [Unknown]
  - Fatigue [Unknown]

NARRATIVE: CASE EVENT DATE: 20200707
